FAERS Safety Report 6146980-8 (Version None)
Quarter: 2009Q2

REPORT INFORMATION
  Report Type: 
  Country: None (occurrence: None)
  Receive Date: 20090407
  Receipt Date: 20090326
  Transmission Date: 20091009
  Serious: No
  Sender: FDA-Public Use
  Company Number: US-ELI_LILLY_AND_COMPANY-US200903007547

PATIENT
  Sex: Male

DRUGS (10)
  1. ZYPREXA [Suspect]
     Indication: SCHIZOAFFECTIVE DISORDER
     Dosage: 30 MG, UNK
     Dates: start: 20081029, end: 20081231
  2. HALOPERIDOL [Concomitant]
     Indication: SCHIZOAFFECTIVE DISORDER
     Dosage: 5 MG, UNK
     Dates: start: 20081104
  3. HALOPERIDOL [Concomitant]
     Dosage: 15 MG, UNK
     Dates: end: 20081209
  4. TRAZODONE [Concomitant]
     Indication: SLEEP DISORDER
     Dosage: 15 MG, AS NEEDED
     Dates: end: 20081102
  5. DEPAKOTE [Concomitant]
     Indication: SCHIZOAFFECTIVE DISORDER
     Dosage: 1000 MG, UNK
     Dates: start: 20081114, end: 20081215
  6. CITALOPRAM HYDROBROMIDE [Concomitant]
     Indication: DEPRESSION
     Dosage: 20 MG, UNK
     Dates: start: 20081125, end: 20081209
  7. METOPROLOL [Concomitant]
     Indication: HYPERTENSION
     Dosage: 12.5 MG, UNK
  8. FISH OIL [Concomitant]
     Dosage: 4800 MG, UNK
  9. ASPIRIN [Concomitant]
  10. LISINOPRIL [Concomitant]
     Indication: HYPERTENSION
     Dosage: 2.5 MG, UNK
     Dates: end: 20081209

REACTIONS (8)
  - BLOOD CREATINE PHOSPHOKINASE INCREASED [None]
  - BLOOD TRIGLYCERIDES INCREASED [None]
  - DIABETES MELLITUS [None]
  - EOSINOPHIL COUNT INCREASED [None]
  - HIGH DENSITY LIPOPROTEIN DECREASED [None]
  - MICROCYTIC ANAEMIA [None]
  - OVERDOSE [None]
  - THALASSAEMIA [None]
